FAERS Safety Report 5048562-8 (Version None)
Quarter: 2006Q2

REPORT INFORMATION
  Report Type: 
  Country: None (occurrence: None)
  Receive Date: 20060601
  Receipt Date: 20060310
  Transmission Date: 20061013
  Serious: No
  Sender: FDA-Public Use
  Company Number: US200603002784

PATIENT
  Age: 72 Year
  Sex: Male

DRUGS (13)
  1. CYMBALTA [Suspect]
     Indication: DEPRESSION
     Dosage: 60 MG
     Dates: start: 20051001
  2. PREVACID [Concomitant]
  3. CENOCORT A-40 (TRIAMCINOLONE ACETONIDE) [Concomitant]
  4. TOPROL-XL [Concomitant]
  5. CELEBREX /UNK/ (CELECOXIB) [Concomitant]
  6. LIPITOR [Concomitant]
  7. TRICOR [Concomitant]
  8. LEVOTHYROXINE SODIUM [Concomitant]
  9. PROPYLENE GLYCOL [Concomitant]
  10. FLONASE [Concomitant]
  11. ASPIRIN [Concomitant]
  12. FISH OIL (FISH OIL) [Concomitant]
  13. VITAMINS [Concomitant]

REACTIONS (2)
  - DEPRESSED MOOD [None]
  - DRUG INEFFECTIVE [None]
